FAERS Safety Report 9379929 (Version 3)
Quarter: 2013Q3

REPORT INFORMATION
  Report Type: Spontaneous
  Country: US (occurrence: None)
  Receive Date: 20130627
  Receipt Date: 20130916
  Transmission Date: 20140515
  Serious: Yes (Hospitalization)
  Sender: FDA-Public Use
  Company Number: JPI-P-033130

PATIENT
  Age: 35 Year
  Sex: Male

DRUGS (1)
  1. XYREM (500 MILLIGRAM/MILLILITERS, SOLUTION) (SODIUM OXYBATE) [Suspect]
     Indication: PRODUCT USED FOR UNKNOWN INDICATION
     Dosage: 5 GM (2.5 GM, 2 IN 1 D)
     Route: 048
     Dates: start: 20040526

REACTIONS (8)
  - Stab wound [None]
  - Intentional self-injury [None]
  - Incorrect dose administered [None]
  - Intentional self-injury [None]
  - Intentional drug misuse [None]
  - Alcohol abuse [None]
  - Suicide attempt [None]
  - Drug abuse [None]
